FAERS Safety Report 9975460 (Version 1)
Quarter: 2014Q1

REPORT INFORMATION
  Report Type: Report from Study
  Country: US (occurrence: US)
  Receive Date: 20140306
  Receipt Date: 20140306
  Transmission Date: 20141002
  Serious: No
  Sender: FDA-Public Use
  Company Number: US-ABBVIE-13P-163-1158447-00

PATIENT
  Age: 54 Year
  Sex: Female

DRUGS (12)
  1. HUMIRA [Suspect]
     Indication: PSORIASIS
     Dates: start: 20130918
  2. METHOTREXATE [Concomitant]
     Indication: PSORIATIC ARTHROPATHY
     Dosage: 3 WEEKLY ON MONDAY
  3. SYNTHROID [Concomitant]
     Indication: THYROIDECTOMY
  4. FISH OIL [Concomitant]
     Indication: SUPPLEMENTATION THERAPY
  5. NEXIUM [Concomitant]
     Indication: GASTROOESOPHAGEAL REFLUX DISEASE
  6. FOLIC ACID [Concomitant]
     Indication: VITAMIN SUPPLEMENTATION
  7. ASPIRIN [Concomitant]
     Indication: PROPHYLAXIS
  8. CITALOPRAM [Concomitant]
     Indication: ANXIETY
  9. CLONAZEPAM [Concomitant]
     Indication: ANXIETY
  10. LOVASTATIN [Concomitant]
     Indication: BLOOD CHOLESTEROL INCREASED
  11. NIACIN [Concomitant]
     Indication: BLOOD CHOLESTEROL
  12. VITAMIN D [Concomitant]
     Indication: SUPPLEMENTATION THERAPY
     Dosage: WEEKLY

REACTIONS (4)
  - Lymphadenopathy [Not Recovered/Not Resolved]
  - Local swelling [Not Recovered/Not Resolved]
  - Nasal congestion [Not Recovered/Not Resolved]
  - Acne [Not Recovered/Not Resolved]
